FAERS Safety Report 9839230 (Version 1)
Quarter: 2014Q1

REPORT INFORMATION
  Report Type: Report from Study
  Country: CA (occurrence: CA)
  Receive Date: 20140123
  Receipt Date: 20140123
  Transmission Date: 20141002
  Serious: Yes (Hospitalization, Other)
  Sender: FDA-Public Use
  Company Number: CA-ABBVIE-14P-028-1191530-00

PATIENT
  Age: 48 Year
  Sex: Female
  Weight: 81.72 kg

DRUGS (6)
  1. HUMIRA [Suspect]
     Indication: RHEUMATOID ARTHRITIS
     Route: 058
     Dates: start: 20120530
  2. DOM CYLOBENZAPRINE [Concomitant]
     Indication: MUSCLE RELAXANT THERAPY
     Route: 048
  3. TEVA PREGABALIN [Concomitant]
     Indication: ANALGESIC THERAPY
     Route: 048
  4. ZOMIG [Concomitant]
     Indication: MIGRAINE
     Dosage: 2.5MG AS NEEDED
     Route: 048
  5. TEVA VENLAFAXINE [Concomitant]
     Indication: DEPRESSION
     Route: 048
  6. ELAVIL [Concomitant]
     Indication: DEPRESSION
     Route: 048

REACTIONS (3)
  - Bile duct stone [Not Recovered/Not Resolved]
  - Pain [Not Recovered/Not Resolved]
  - Bile duct stone [Unknown]
